FAERS Safety Report 9857169 (Version 1)
Quarter: 2014Q1

REPORT INFORMATION
  Report Type: Spontaneous
  Country: US (occurrence: None)
  Receive Date: 20140128
  Receipt Date: 20140128
  Transmission Date: 20141002
  Serious: Yes (Death)
  Sender: FDA-Public Use
  Company Number: AUR-APL-2014-00486

PATIENT
  Age: 46 Year
  Sex: Female

DRUGS (4)
  1. QUETIAPINE [Suspect]
     Indication: PRODUCT USED FOR UNKNOWN INDICATION
  2. DULOXETINE (DULOXETINE) (DULOXETINE) [Suspect]
     Indication: PRODUCT USED FOR UNKNOWN INDICATION
  3. METHADONE (METHADONE) [Suspect]
  4. ALPRAZOLAM (ALPRAZOLAM) [Suspect]
     Indication: PRODUCT USED FOR UNKNOWN INDICATION

REACTIONS (3)
  - Toxicity to various agents [None]
  - Brain hypoxia [None]
  - Hepatic steatosis [None]
